FAERS Safety Report 17849923 (Version 1)
Quarter: 2020Q2

REPORT INFORMATION
  Report Type: Spontaneous
  Country: NL (occurrence: NL)
  Receive Date: 20200602
  Receipt Date: 20200602
  Transmission Date: 20200714
  Serious: Yes (Other)
  Sender: FDA-Public Use
  Company Number: NL-TEVA-2020-NL-1242655

PATIENT
  Sex: Female
  Weight: 69 kg

DRUGS (2)
  1. EUTHYROX (LEVOTHYROXINE) [Concomitant]
     Dosage: 75 UG (MICROGRAM), THERAPY START AND END DATE: ASKED BUT UNKNOWN
  2. AMLODIPINE [Suspect]
     Active Substance: AMLODIPINE BESYLATE
     Indication: HYPERTENSION
     Dosage: 1X1  (5 MG)
     Dates: start: 202001, end: 20200418

REACTIONS (3)
  - Polyneuropathy [Recovered/Resolved]
  - Condition aggravated [Recovered/Resolved]
  - Balance disorder [Recovered/Resolved]
